FAERS Safety Report 19970441 (Version 1)
Quarter: 2021Q4

REPORT INFORMATION
  Report Type: Spontaneous
  Country: US (occurrence: US)
  Receive Date: 20211020
  Receipt Date: 20211020
  Transmission Date: 20220303
  Serious: No
  Sender: FDA-Public Use
  Company Number: US-BRISTOL-MYERS SQUIBB COMPANY-BMS-2021-103616

PATIENT
  Age: 57 Year
  Sex: Female

DRUGS (1)
  1. TRIAMCINOLONE ACETONIDE [Suspect]
     Active Substance: TRIAMCINOLONE ACETONIDE
     Indication: Systemic lupus erythematosus
     Dosage: 40 MG/DL
     Route: 014

REACTIONS (2)
  - Skin discolouration [Recovered/Resolved]
  - Intentional product use issue [Unknown]
